FAERS Safety Report 16372223 (Version 3)
Quarter: 2025Q2

REPORT INFORMATION
  Report Type: Other
  Country: DE (occurrence: DE)
  Receive Date: 20190530
  Receipt Date: 20250501
  Transmission Date: 20250717
  Serious: Yes (Hospitalization, Other)
  Sender: NOVA LABORATORIES LIMITED
  Company Number: DE-RARE DISEASE THERAPEUTICS, INC.-2067591

PATIENT
  Age: 34 Year
  Sex: Female

DRUGS (19)
  1. PURIXAN [Suspect]
     Active Substance: MERCAPTOPURINE
     Indication: B-cell type acute leukaemia
  2. LEUCOVORIN CALCIUM [Suspect]
     Active Substance: LEUCOVORIN CALCIUM
  3. SODIUM CHLORIDE [Suspect]
     Active Substance: SODIUM CHLORIDE
  4. FILGRASTIM [Suspect]
     Active Substance: FILGRASTIM
  5. ETOPOSIDE [Suspect]
     Active Substance: ETOPOSIDE
  6. VINDESINE [Suspect]
     Active Substance: VINDESINE
  7. MESNA [Suspect]
     Active Substance: MESNA
  8. PEGASPARGASE [Suspect]
     Active Substance: PEGASPARGASE
  9. RITUXIMAB [Suspect]
     Active Substance: RITUXIMAB
  10. DAUNORUBICIN [Suspect]
     Active Substance: DAUNORUBICIN
  11. CYCLOPHOSPHAMIDE [Suspect]
     Active Substance: CYCLOPHOSPHAMIDE
  12. CYCLOPHOSPHAMIDE [Suspect]
     Active Substance: CYCLOPHOSPHAMIDE
  13. METHOTREXATE [Suspect]
     Active Substance: METHOTREXATE
  14. METHOTREXATE [Suspect]
     Active Substance: METHOTREXATE
  15. METHOTREXATE [Suspect]
     Active Substance: METHOTREXATE
  16. VINCRISTINE [Suspect]
     Active Substance: VINCRISTINE
  17. DEXAMETHASONE [Suspect]
     Active Substance: DEXAMETHASONE
  18. CYTARABINE [Suspect]
     Active Substance: CYTARABINE
  19. CYTARABINE [Suspect]
     Active Substance: CYTARABINE

REACTIONS (3)
  - Foetal growth restriction [Recovered/Resolved]
  - Exposure during pregnancy [Recovered/Resolved]
  - Premature delivery [Recovered/Resolved]
